FAERS Safety Report 24658702 (Version 1)
Quarter: 2024Q4

REPORT INFORMATION
  Report Type: Spontaneous
  Country: US (occurrence: None)
  Receive Date: 20241122
  Receipt Date: 20241122
  Transmission Date: 20250114
  Serious: Yes (Other)
  Sender: Public
  Company Number: None

PATIENT
  Age: 70 Year
  Sex: Female

DRUGS (1)
  1. LENVIMA [Suspect]
     Active Substance: LENVATINIB
     Indication: Renal cancer
     Dosage: 10 MG DAILY ORAL?
     Route: 048
     Dates: start: 20240424, end: 20241122

REACTIONS (4)
  - Arthralgia [None]
  - Myalgia [None]
  - Dysstasia [None]
  - Therapy cessation [None]

NARRATIVE: CASE EVENT DATE: 20241122
